FAERS Safety Report 7777606-5 (Version None)
Quarter: 2011Q3

REPORT INFORMATION
  Report Type: 
  Country: None (occurrence: None)
  Receive Date: 20110926
  Receipt Date: 20110915
  Transmission Date: 20111222
  Serious: Yes (Hospitalization, Other)
  Sender: FDA-Public Use
  Company Number: US-BAYER-201040130NA

PATIENT
  Age: 19 Year
  Sex: Female

DRUGS (2)
  1. YASMIN [Suspect]
     Indication: CONTRACEPTION
     Dosage: UNK
     Dates: start: 20060801, end: 20070101
  2. YASMIN [Suspect]
     Indication: ACNE

REACTIONS (7)
  - ABDOMINAL PAIN UPPER [None]
  - IRRITABLE BOWEL SYNDROME [None]
  - CHOLECYSTECTOMY [None]
  - BACK PAIN [None]
  - CYSTITIS [None]
  - GASTROINTESTINAL MOTILITY DISORDER [None]
  - DIARRHOEA [None]
